FAERS Safety Report 9285958 (Version 2)
Quarter: 2013Q4

REPORT INFORMATION
  Report Type: Spontaneous
  Country: PL (occurrence: PL)
  Receive Date: 20130513
  Receipt Date: 20131010
  Transmission Date: 20140711
  Serious: Yes (Other)
  Sender: FDA-Public Use
  Company Number: PL-PFIZER INC-2013143363

PATIENT
  Age: 31 Year
  Sex: Female
  Weight: 75 kg

DRUGS (1)
  1. DALACIN C [Suspect]
     Dosage: UNK
     Route: 048
     Dates: start: 20130306, end: 20130319

REACTIONS (2)
  - Dyspnoea [Recovering/Resolving]
  - Rash macular [Recovering/Resolving]
